FAERS Safety Report 5678075-1 (Version None)
Quarter: 2008Q1

REPORT INFORMATION
  Report Type: 
  Country: None (occurrence: None)
  Receive Date: 20080324
  Receipt Date: 20080324
  Transmission Date: 20080703
  Serious: Yes (Life-Threatening)
  Sender: FDA-Public Use
  Company Number: None

PATIENT
  Age: 48 Year
  Sex: Male
  Weight: 115.6672 kg

DRUGS (1)
  1. CHANTIX [Suspect]

REACTIONS (5)
  - ANXIETY [None]
  - IMPAIRED WORK ABILITY [None]
  - MAJOR DEPRESSION [None]
  - MOOD ALTERED [None]
  - SUICIDAL IDEATION [None]
